FAERS Safety Report 7426202-8 (Version None)
Quarter: 2011Q2

REPORT INFORMATION
  Report Type: 
  Country: None (occurrence: None)
  Receive Date: 20110420
  Receipt Date: 20110408
  Transmission Date: 20111010
  Serious: Yes (Other)
  Sender: FDA-Public Use
  Company Number: DE-AMGEN-DEUSP2011012620

PATIENT
  Age: 81 Year
  Sex: Female

DRUGS (1)
  1. PROLIA [Suspect]
     Indication: OSTEOPOROSIS
     Dosage: UNK
     Route: 058
     Dates: start: 20101215

REACTIONS (10)
  - OEDEMA PERIPHERAL [None]
  - FAECAL INCONTINENCE [None]
  - ABDOMINAL DISCOMFORT [None]
  - INFLAMMATION [None]
  - ERYTHEMA [None]
  - FAECES DISCOLOURED [None]
  - URINARY INCONTINENCE [None]
  - PAIN IN EXTREMITY [None]
  - GAIT DISTURBANCE [None]
  - VISUAL IMPAIRMENT [None]
